FAERS Safety Report 12186653 (Version 2)
Quarter: 2017Q3

REPORT INFORMATION
  Report Type: Spontaneous
  Country: US (occurrence: US)
  Receive Date: 20160317
  Receipt Date: 20170920
  Transmission Date: 20171127
  Serious: Yes (Death, Hospitalization)
  Sender: FDA-Public Use
  Company Number: US-SUN PHARMACEUTICAL INDUSTRIES LTD-2016US-113357

PATIENT
  Age: 56 Year
  Sex: Male

DRUGS (1)
  1. ALLOPURINOL. [Suspect]
     Active Substance: ALLOPURINOL
     Indication: TUMOUR LYSIS SYNDROME
     Dosage: UNK
     Route: 065

REACTIONS (5)
  - Cardiomyopathy [Fatal]
  - Hypereosinophilic syndrome [Fatal]
  - Pulmonary oedema [Fatal]
  - Drug reaction with eosinophilia and systemic symptoms [Fatal]
  - Pulseless electrical activity [Fatal]
